FAERS Safety Report 16651133 (Version 1)
Quarter: 2019Q3

REPORT INFORMATION
  Report Type: Spontaneous
  Country: US (occurrence: US)
  Receive Date: 20190731
  Receipt Date: 20190731
  Transmission Date: 20191004
  Serious: No
  Sender: FDA-Public Use
  Company Number: US-009507513-1907USA016425

PATIENT
  Age: 36 Year
  Sex: Female

DRUGS (1)
  1. NEXPLANON [Suspect]
     Active Substance: ETONOGESTREL
     Indication: CONTRACEPTION
     Dosage: UNK UNK, ONCE, IN ARM
     Route: 059
     Dates: start: 20190701, end: 20190716

REACTIONS (2)
  - Implant site hypoaesthesia [Unknown]
  - Implant site pain [Unknown]

NARRATIVE: CASE EVENT DATE: 201907
